FAERS Safety Report 21130571 (Version 1)
Quarter: 2022Q3

REPORT INFORMATION
  Report Type: Spontaneous
  Country: US (occurrence: US)
  Receive Date: 20220726
  Receipt Date: 20220726
  Transmission Date: 20221026
  Serious: Yes (Hospitalization, Other)
  Sender: FDA-Public Use
  Company Number: US-PCCINC-2022-PEL-000381

PATIENT

DRUGS (4)
  1. DEXMEDETOMIDINE [Suspect]
     Active Substance: DEXMEDETOMIDINE
     Indication: Delirium
     Dosage: 1.5 MCG/KG/HR
     Route: 065
  2. DEXMEDETOMIDINE [Suspect]
     Active Substance: DEXMEDETOMIDINE
     Dosage: 0.5 MICROGRAM
  3. LORAZEPAM [Concomitant]
     Active Substance: LORAZEPAM
     Indication: Delirium
     Dosage: UNK
     Route: 065
  4. HALOPERIDOL [Concomitant]
     Active Substance: HALOPERIDOL
     Indication: Delirium
     Dosage: UNK
     Route: 065

REACTIONS (3)
  - Central sleep apnoea syndrome [Recovered/Resolved]
  - Hyperventilation [Recovered/Resolved]
  - Apnoeic attack [Recovered/Resolved]
